FAERS Safety Report 6393374-6 (Version None)
Quarter: 2009Q4

REPORT INFORMATION
  Report Type: 
  Country: None (occurrence: None)
  Receive Date: 20091008
  Receipt Date: 20091007
  Transmission Date: 20100525
  Serious: Yes (Other)
  Sender: FDA-Public Use
  Company Number: TR-JNJFOC-20090908805

PATIENT
  Age: 5 Year
  Sex: Male

DRUGS (3)
  1. METHYLPHENIDATE HCL [Suspect]
     Route: 048
  2. METHYLPHENIDATE HCL [Suspect]
     Indication: ATTENTION DEFICIT/HYPERACTIVITY DISORDER
     Route: 048
  3. RISPERIDONE [Suspect]
     Indication: NEGATIVISM
     Route: 065

REACTIONS (4)
  - AGGRESSION [None]
  - AGITATION [None]
  - HYPERVIGILANCE [None]
  - IRRITABILITY [None]
